FAERS Safety Report 21672149 (Version 1)
Quarter: 2022Q4

REPORT INFORMATION
  Report Type: Report from Study
  Country: US (occurrence: US)
  Receive Date: 20221202
  Receipt Date: 20221202
  Transmission Date: 20230113
  Serious: No
  Sender: FDA-Public Use
  Company Number: US-ZOGENIX INTERNATIONAL LIMITED-ZX008-2017-00108

PATIENT
  Age: 6 Year
  Sex: Female
  Weight: 20 kg

DRUGS (7)
  1. FENFLURAMINE HYDROCHLORIDE [Suspect]
     Active Substance: FENFLURAMINE HYDROCHLORIDE
     Indication: Severe myoclonic epilepsy of infancy
     Dosage: BLINDED
     Route: 048
     Dates: start: 20170104
  2. FENFLURAMINE HYDROCHLORIDE [Suspect]
     Active Substance: FENFLURAMINE HYDROCHLORIDE
     Indication: Severe myoclonic epilepsy of infancy
     Dosage: BLINDED
     Route: 048
     Dates: start: 20170104
  3. FENFLURAMINE HYDROCHLORIDE [Suspect]
     Active Substance: FENFLURAMINE HYDROCHLORIDE
     Indication: Severe myoclonic epilepsy of infancy
     Dosage: BLINDED
     Route: 048
     Dates: start: 20170104
  4. PLACEBO [Suspect]
     Active Substance: UNSPECIFIED INGREDIENT
     Indication: Severe myoclonic epilepsy of infancy
     Dosage: BLINDED
     Route: 048
     Dates: start: 20170104
  5. DEPAKOTE [Concomitant]
     Active Substance: DIVALPROEX SODIUM
     Indication: Epilepsy
     Dosage: 250 MG MILLIGRAM(S), DAILY DOSE
     Route: 048
     Dates: start: 20160303
  6. ONFI [Concomitant]
     Active Substance: CLOBAZAM
     Indication: Epilepsy
     Dosage: 20 MG MILLIGRAM(S), DAILY DOSE
     Route: 048
     Dates: start: 20160219
  7. AMANTADINE [Concomitant]
     Active Substance: AMANTADINE
     Indication: Seizure
     Dosage: 10 ML MILLILITRE(S), DAILY DOSE
     Route: 048
     Dates: start: 20160829

REACTIONS (1)
  - Echocardiogram abnormal [Recovered/Resolved]

NARRATIVE: CASE EVENT DATE: 20170411
